FAERS Safety Report 12797727 (Version 1)
Quarter: 2016Q3

REPORT INFORMATION
  Report Type: Spontaneous
  Country: US (occurrence: US)
  Receive Date: 20160930
  Receipt Date: 20160930
  Transmission Date: 20161109
  Serious: No
  Sender: FDA-Public Use
  Company Number: US-TEVA-692710USA

PATIENT
  Age: 29 Year
  Sex: Female
  Weight: 68.1 kg

DRUGS (1)
  1. JUNEL FE 1/20 [Suspect]
     Active Substance: ETHINYL ESTRADIOL\NORETHINDRONE ACETATE
     Indication: CONTRACEPTION
     Dosage: 1 MG/20 MCG
     Dates: start: 20160710

REACTIONS (6)
  - Muscle spasms [Unknown]
  - Fatigue [Unknown]
  - Menstrual disorder [Unknown]
  - Weight increased [Unknown]
  - Headache [Unknown]
  - Adverse event [Unknown]

NARRATIVE: CASE EVENT DATE: 201607
